FAERS Safety Report 12562906 (Version 2)
Quarter: 2016Q3

REPORT INFORMATION
  Report Type: Spontaneous
  Country: DE (occurrence: DE)
  Receive Date: 20160715
  Receipt Date: 20160825
  Transmission Date: 20161109
  Serious: Yes (Hospitalization)
  Sender: FDA-Public Use
  Company Number: DE-TEVA-674282GER

PATIENT
  Age: 67 Year
  Sex: Male

DRUGS (4)
  1. ALLOPURINOL 300MG [Concomitant]
  2. TAMSULOSIN-RATIOPHARM 0,4 MG HARTKAPSELN MIT VER?NDERTER WIRKSTOFFFREI [Suspect]
     Active Substance: TAMSULOSIN
     Dosage: FEW DAYS
  3. GLIMEPIRID 3MG [Concomitant]
  4. VICTOZA [Concomitant]
     Active Substance: LIRAGLUTIDE

REACTIONS (4)
  - Swelling [Recovered/Resolved]
  - Skin discolouration [Recovered/Resolved]
  - Erythema [Recovered/Resolved]
  - Drug intolerance [Recovered/Resolved]

NARRATIVE: CASE EVENT DATE: 201606
